FAERS Safety Report 4641279-0 (Version None)
Quarter: 2005Q2

REPORT INFORMATION
  Report Type: 
  Country: None (occurrence: None)
  Receive Date: 20050420
  Receipt Date: 20050420
  Transmission Date: 20051028
  Serious: No
  Sender: FDA-Public Use
  Company Number: None

PATIENT
  Age: 59 Year
  Sex: Male
  Weight: 70.7 kg

DRUGS (5)
  1. ABELCET [Suspect]
     Dosage: 350 MG Q DAY IV
     Route: 042
     Dates: start: 20040805, end: 20040821
  2. FLUCYTOSINE [Suspect]
     Dosage: 1500 MG Q DAY IV
     Route: 042
     Dates: start: 20040803, end: 20040821
  3. FLUCONAZOLE [Concomitant]
  4. CEFTRIAXONE [Concomitant]
  5. GLYBURIDE [Concomitant]

REACTIONS (1)
  - RENAL FAILURE ACUTE [None]
